FAERS Safety Report 9005326 (Version 1)
Quarter: 2013Q1

REPORT INFORMATION
  Report Type: Spontaneous
  Country: US (occurrence: US)
  Receive Date: 20130108
  Receipt Date: 20130108
  Transmission Date: 20140127
  Serious: No
  Sender: FDA-Public Use
  Company Number: US-GLAXOSMITHKLINE-A1003551A

PATIENT
  Age: 40 Year
  Sex: Male

DRUGS (3)
  1. POTIGA [Suspect]
     Indication: CONVULSION
     Dosage: 50MG THREE TIMES PER DAY
     Route: 048
     Dates: start: 201211
  2. LAMICTAL [Concomitant]
  3. CLOBAZAM [Concomitant]

REACTIONS (1)
  - Aggression [Unknown]
